FAERS Safety Report 22784458 (Version 2)
Quarter: 2024Q1

REPORT INFORMATION
  Report Type: Spontaneous
  Country: FR (occurrence: FR)
  Receive Date: 20230803
  Receipt Date: 20240306
  Transmission Date: 20240409
  Serious: Yes (Hospitalization, Other)
  Sender: FDA-Public Use
  Company Number: None

PATIENT
  Age: 69 Year
  Sex: Female
  Weight: 46 kg

DRUGS (7)
  1. LIPTRUZET [Suspect]
     Active Substance: ATORVASTATIN CALCIUM\EZETIMIBE
     Indication: Coronary artery disease
     Dosage: 0/0/1, FILM-COATED TABLET
     Route: 048
     Dates: start: 20230309, end: 20230422
  2. INNOVAIR [Concomitant]
     Active Substance: BECLOMETHASONE DIPROPIONATE\FORMOTEROL
     Indication: Asthma
     Dosage: UNK
     Route: 045
     Dates: end: 20230421
  3. PERFALGAN [Concomitant]
     Active Substance: ACETAMINOPHEN
     Dosage: 1G 4 TIMES/DAY, 10 MG/ML
     Route: 042
     Dates: start: 20230421, end: 20230424
  4. AUGMENTIN [Concomitant]
     Active Substance: AMOXICILLIN\CLAVULANATE POTASSIUM
     Dosage: 1-1-1, 1 G/200 MG, POWDER AND SOLVENT FOR SOLUTION FOR INJECTION
     Route: 042
     Dates: start: 20230421, end: 20230422
  5. PHLOROGLUCINOL\1,3,5-TRIMETHOXYBENZENE [Concomitant]
     Active Substance: PHLOROGLUCINOL\1,3,5-TRIMETHOXYBENZENE
     Dosage: 2 AMPOULES 3 TIMES/DAY, SOLUTION FOR INJECTION IN AMPOULE
     Route: 042
     Dates: start: 20230421, end: 20230424
  6. AMLODIPINE [Concomitant]
     Active Substance: AMLODIPINE BESYLATE
     Dosage: 0-0-1
     Route: 048
     Dates: start: 20230309
  7. ACUPAN [Concomitant]
     Active Substance: NEFOPAM HYDROCHLORIDE
     Dosage: 20 MG 4 TIMES/DAY
     Route: 042
     Dates: start: 20230421, end: 20230424

REACTIONS (1)
  - Mixed liver injury [Recovered/Resolved]

NARRATIVE: CASE EVENT DATE: 20230418
